FAERS Safety Report 24250423 (Version 1)
Quarter: 2024Q3

REPORT INFORMATION
  Report Type: Spontaneous
  Country: US (occurrence: None)
  Receive Date: 20240824
  Receipt Date: 20240824
  Transmission Date: 20241016
  Serious: No
  Sender: Public
  Company Number: None

PATIENT
  Age: 76 Year
  Sex: Female
  Weight: 94.5 kg

DRUGS (5)
  1. FLUTICASONE PROPIONATE [Suspect]
     Active Substance: FLUTICASONE PROPIONATE
     Indication: Nasal congestion
     Dosage: ?FREQUENCY : AT BEDTIME ?
     Route: 055
     Dates: start: 20240814, end: 20240814
  2. benedryl [Concomitant]
  3. LEVOTHYROXINE [Concomitant]
     Active Substance: LEVOTHYROXINE\LEVOTHYROXINE SODIUM
  4. PROGESTERONE [Concomitant]
     Active Substance: PROGESTERONE
  5. ESTRADIOL TRANSDERMAL SYSTEM [Concomitant]
     Active Substance: ESTRADIOL

REACTIONS (6)
  - Feeling hot [None]
  - Pruritus [None]
  - Swelling face [None]
  - Erythema [None]
  - Fatigue [None]
  - Facial pain [None]

NARRATIVE: CASE EVENT DATE: 20240814
